FAERS Safety Report 8273185-7 (Version None)
Quarter: 2012Q2

REPORT INFORMATION
  Report Type: 
  Country: None (occurrence: None)
  Receive Date: 20120411
  Receipt Date: 20120402
  Transmission Date: 20120825
  Serious: Yes (Death)
  Sender: FDA-Public Use
  Company Number: US-ROXANE LABORATORIES, INC.-2012-EU-01883GD

PATIENT

DRUGS (1)
  1. MORPHINE [Suspect]
     Indication: NEPHROLITHIASIS

REACTIONS (1)
  - DEATH [None]
